FAERS Safety Report 7301210-6 (Version None)
Quarter: 2011Q1

REPORT INFORMATION
  Report Type: 
  Country: None (occurrence: None)
  Receive Date: 20110218
  Receipt Date: 20110208
  Transmission Date: 20110831
  Serious: Yes (Other)
  Sender: FDA-Public Use
  Company Number: ES-ELI_LILLY_AND_COMPANY-ES201010000976

PATIENT
  Sex: Female
  Weight: 49 kg

DRUGS (7)
  1. URSOBILANE [Concomitant]
     Indication: NEPHROLITHIASIS
     Dosage: 1TAB/24HR
     Route: 048
  2. TELMISARTAN [Concomitant]
     Indication: HYPERTENSION
     Dosage: 1TAB/24HR
     Route: 048
  3. FORTEO [Suspect]
     Indication: OSTEOPOROSIS
     Dosage: 20 UG, DAILY (1/D)
     Route: 058
     Dates: start: 20100510, end: 20100801
  4. EUTIROX [Concomitant]
     Indication: HYPOTHYROIDISM
     Dosage: 50 MG, DAILY (1/D)
     Route: 048
  5. LORAZEPAM [Concomitant]
     Indication: SLEEP DISORDER
     Dosage: 1TAB/24HR
     Route: 048
  6. OMEPRAZOLE [Concomitant]
     Dosage: 1 TAB/24HR
     Route: 048
  7. EZETROL [Concomitant]
     Indication: HYPERLIPIDAEMIA
     Dosage: 1TAB/24HR
     Route: 048
     Dates: end: 20100801

REACTIONS (1)
  - NEPHROLITHIASIS [None]
